FAERS Safety Report 19082859 (Version 1)
Quarter: 2021Q2

REPORT INFORMATION
  Report Type: Spontaneous
  Country: BR (occurrence: BR)
  Receive Date: 20210401
  Receipt Date: 20210401
  Transmission Date: 20210717
  Serious: Yes (Other)
  Sender: FDA-Public Use
  Company Number: BR-TAKEDA-2021TUS019029

PATIENT
  Age: 32 Year
  Sex: Female

DRUGS (4)
  1. INFLIXIMAB [Suspect]
     Active Substance: INFLIXIMAB
     Indication: PRODUCT USED FOR UNKNOWN INDICATION
     Dosage: UNK
     Route: 065
  2. ENTYVIO [Suspect]
     Active Substance: VEDOLIZUMAB
     Indication: COLITIS ULCERATIVE
     Dosage: UNK
     Route: 042
  3. MESALAZINE [Suspect]
     Active Substance: MESALAMINE
     Indication: COLITIS
     Dosage: 4 GRAM, QD
     Route: 065
  4. AZATHIOPRINE. [Suspect]
     Active Substance: AZATHIOPRINE
     Indication: COLITIS
     Dosage: UNK UNK, QD
     Route: 065

REACTIONS (11)
  - Colitis ulcerative [Unknown]
  - Pruritus [Unknown]
  - Fatigue [Unknown]
  - Haematochezia [Unknown]
  - Systemic lupus erythematosus [Unknown]
  - Haemorrhage [Unknown]
  - Skin discolouration [Unknown]
  - Diarrhoea [Unknown]
  - Red blood cell sedimentation rate increased [Unknown]
  - Vitiligo [Unknown]
  - Infusion related reaction [Unknown]
